FAERS Safety Report 15761914 (Version 2)
Quarter: 2019Q1

REPORT INFORMATION
  Report Type: Spontaneous
  Country: TW (occurrence: TW)
  Receive Date: 20181226
  Receipt Date: 20190109
  Transmission Date: 20190417
  Serious: Yes (Hospitalization)
  Sender: FDA-Public Use
  Company Number: TW-PFIZER INC-2018302392

PATIENT
  Age: 52 Year
  Sex: Male

DRUGS (2)
  1. SUTENT [Suspect]
     Active Substance: SUNITINIB MALATE
     Indication: RENAL CELL CARCINOMA
     Dosage: 50 MG, CYCLIC (DAILY, FOUR WEEKS ON AND TWO WEEKS OFF)
     Route: 048
     Dates: start: 20180329, end: 2018
  2. SUTENT [Suspect]
     Active Substance: SUNITINIB MALATE
     Dosage: 50 MG, CYCLIC (DAILY, TWO WEEKS ONA ND ONE WEEK OFF)
     Route: 048
     Dates: start: 2018, end: 20181105

REACTIONS (6)
  - Discomfort [Unknown]
  - Dyspnoea [Recovering/Resolving]
  - Diarrhoea [Not Recovered/Not Resolved]
  - Dysgeusia [Not Recovered/Not Resolved]
  - Cardiopulmonary failure [Recovering/Resolving]
  - Anaemia [Recovering/Resolving]

NARRATIVE: CASE EVENT DATE: 2018
